FAERS Safety Report 7689549-6 (Version None)
Quarter: 2011Q3

REPORT INFORMATION
  Report Type: 
  Country: None (occurrence: None)
  Receive Date: 20110811
  Receipt Date: 20110804
  Transmission Date: 20111222
  Serious: Yes (Death, Hospitalization)
  Sender: FDA-Public Use
  Company Number: DKLU1071105

PATIENT
  Age: 8 Year
  Sex: Male

DRUGS (1)
  1. SABRIL [Suspect]
     Indication: INFANTILE SPASMS
     Dosage: 10, 300 ML MILLILITRE(S), 2 IN 1 D, ORAL
     Route: 048
     Dates: start: 20110628

REACTIONS (7)
  - PNEUMOTHORAX [None]
  - IMPAIRED HEALING [None]
  - EYE INFECTION STAPHYLOCOCCAL [None]
  - PNEUMONIA [None]
  - ARTHRITIS INFECTIVE [None]
  - CYSTITIS [None]
  - WOUND [None]
